FAERS Safety Report 9980970 (Version 1)
Quarter: 2014Q1

REPORT INFORMATION
  Report Type: Spontaneous
  Country: US (occurrence: US)
  Receive Date: 20140307
  Receipt Date: 20140307
  Transmission Date: 20141002
  Serious: No
  Sender: FDA-Public Use
  Company Number: US-GLAXOSMITHKLINE-A1052664A

PATIENT
  Age: 59 Year
  Sex: Female

DRUGS (3)
  1. REQUIP [Suspect]
     Indication: RESTLESS LEGS SYNDROME
     Dosage: 2MG AS REQUIRED
     Route: 048
     Dates: start: 20081209
  2. MACROBID [Concomitant]
  3. TYLENOL ARTHRITIS [Concomitant]

REACTIONS (8)
  - Somnolence [Unknown]
  - Dizziness [Unknown]
  - Abdominal discomfort [Unknown]
  - Drug ineffective [Unknown]
  - Cystitis [Unknown]
  - Diarrhoea [Unknown]
  - Muscle spasms [Unknown]
  - Insomnia [Not Recovered/Not Resolved]
